FAERS Safety Report 6235288-8 (Version None)
Quarter: 2009Q2

REPORT INFORMATION
  Report Type: 
  Country: None (occurrence: None)
  Receive Date: 20090618
  Receipt Date: 20090610
  Transmission Date: 20091009
  Serious: Yes (Other)
  Sender: FDA-Public Use
  Company Number: US-GENENTECH-283377

PATIENT
  Age: 50 Year
  Sex: Female

DRUGS (1)
  1. RITUXAN [Suspect]
     Indication: RHEUMATOID ARTHRITIS
     Dosage: UNK
     Dates: start: 20080401

REACTIONS (4)
  - BALANCE DISORDER [None]
  - DYSARTHRIA [None]
  - DYSPHAGIA [None]
  - HEADACHE [None]
